FAERS Safety Report 8541799-2 (Version None)
Quarter: 2012Q3

REPORT INFORMATION
  Report Type: 
  Country: None (occurrence: None)
  Receive Date: 20120726
  Receipt Date: 20110906
  Transmission Date: 20120928
  Serious: No
  Sender: FDA-Public Use
  Company Number: US-ASTRAZENECA-2011SE53384

PATIENT
  Age: 49 Year
  Sex: Male
  Weight: 90.7 kg

DRUGS (2)
  1. SEROQUEL [Suspect]
     Indication: DEPRESSION
     Route: 048
  2. BLOOD PRESSURE MED [Concomitant]

REACTIONS (4)
  - DRUG DOSE OMISSION [None]
  - DEPRESSION [None]
  - FEELING ABNORMAL [None]
  - IRRITABILITY [None]
